FAERS Safety Report 5781636-2 (Version None)
Quarter: 2008Q2

REPORT INFORMATION
  Report Type: 
  Country: None (occurrence: None)
  Receive Date: 20080623
  Receipt Date: 20080523
  Transmission Date: 20081010
  Serious: No
  Sender: FDA-Public Use
  Company Number: US-BAYER-200818402NA

PATIENT
  Age: 35 Year
  Sex: Female
  Weight: 93 kg

DRUGS (3)
  1. AVELOX [Suspect]
     Indication: DRUG USE FOR UNKNOWN INDICATION
     Route: 048
  2. PREDNISONE TAB [Concomitant]
  3. AVALIDE [Concomitant]

REACTIONS (1)
  - DELUSION [None]
